FAERS Safety Report 7763095-3 (Version None)
Quarter: 2011Q3

REPORT INFORMATION
  Report Type: 
  Country: None (occurrence: None)
  Receive Date: 20110920
  Receipt Date: 20110912
  Transmission Date: 20111222
  Serious: Yes (Hospitalization)
  Sender: FDA-Public Use
  Company Number: US-B.I. PHARMACEUTICALS,INC./RIDGEFIELD-2011-BP-21476BP

PATIENT
  Age: 27 Year
  Sex: Male

DRUGS (2)
  1. DULCOLAX [Suspect]
     Indication: GASTROINTESTINAL MOTILITY DISORDER
  2. IPILIMUMAB [Suspect]
     Indication: MALIGNANT MELANOMA
     Route: 042
     Dates: start: 20110705, end: 20110726

REACTIONS (3)
  - PANCREATITIS [None]
  - COLITIS [None]
  - TREATMENT NONCOMPLIANCE [None]
